FAERS Safety Report 7917189-X (Version None)
Quarter: 2011Q4

REPORT INFORMATION
  Report Type: 
  Country: None (occurrence: None)
  Receive Date: 20111116
  Receipt Date: 20111114
  Transmission Date: 20120403
  Serious: Yes (Hospitalization)
  Sender: FDA-Public Use
  Company Number: PE-BAYER-2011-110406

PATIENT
  Age: 72 Year
  Sex: Female

DRUGS (4)
  1. MICARDIS [Concomitant]
     Indication: HYPERTENSION
  2. METOPROLOL TARTRATE [Concomitant]
     Indication: HYPERTENSION
  3. ASPIRIN [Suspect]
     Indication: CARDIOVASCULAR EVENT PROPHYLAXIS
     Dosage: 100 MG, QD
     Route: 048
     Dates: end: 20111113
  4. ADALAT [Concomitant]
     Indication: HYPERTENSION

REACTIONS (1)
  - UPPER GASTROINTESTINAL HAEMORRHAGE [None]
